FAERS Safety Report 5095058-3 (Version None)
Quarter: 2006Q3

REPORT INFORMATION
  Report Type: 
  Country: None (occurrence: None)
  Receive Date: 20060830
  Receipt Date: 20060816
  Transmission Date: 20061208
  Serious: Yes (Other)
  Sender: FDA-Public Use
  Company Number: US-2006-023810

PATIENT
  Age: 32 Year
  Sex: Female
  Weight: 61.2 kg

DRUGS (3)
  1. MIRENA [Suspect]
     Indication: CONTRACEPTION
     Dosage: 20 UG/DAY, CONT, INTRA-UTERINE
     Route: 015
     Dates: start: 20060705
  2. LEXAPRO (ESCITALOPRAM OXALATE) [Concomitant]
  3. VITAMINS NOS (VITAMINS NOS) [Concomitant]

REACTIONS (5)
  - BLOOD BILIRUBIN INCREASED [None]
  - OCULAR ICTERUS [None]
  - POST PROCEDURAL DIZZINESS [None]
  - POST PROCEDURAL NAUSEA [None]
  - POST PROCEDURAL VOMITING [None]
